FAERS Safety Report 5096420-5 (Version None)
Quarter: 2006Q3

REPORT INFORMATION
  Report Type: 
  Country: None (occurrence: None)
  Receive Date: 20060905
  Receipt Date: 20060719
  Transmission Date: 20061208
  Serious: Yes (Other)
  Sender: FDA-Public Use
  Company Number: US-GLAXOSMITHKLINE-A0612776A

PATIENT
  Age: 15 Year
  Sex: Male

DRUGS (1)
  1. NICODERM CQ [Suspect]
     Route: 062
     Dates: start: 20060718, end: 20060718

REACTIONS (5)
  - DIZZINESS [None]
  - HAEMATEMESIS [None]
  - NAUSEA [None]
  - PAIN [None]
  - RESTLESSNESS [None]
